FAERS Safety Report 18933329 (Version 5)
Quarter: 2023Q2

REPORT INFORMATION
  Report Type: Spontaneous
  Country: US (occurrence: US)
  Receive Date: 20210224
  Receipt Date: 20230418
  Transmission Date: 20230721
  Serious: Yes (Hospitalization, Other)
  Sender: FDA-Public Use
  Company Number: US-GILEAD-2021-0517962

PATIENT
  Sex: Female
  Weight: 83.007 kg

DRUGS (126)
  1. VIREAD [Suspect]
     Active Substance: TENOFOVIR DISOPROXIL FUMARATE
     Indication: HIV infection
     Dosage: UNK
     Route: 048
     Dates: start: 2003, end: 2006
  2. TRUVADA [Suspect]
     Active Substance: EMTRICITABINE\TENOFOVIR DISOPROXIL FUMARATE
     Indication: HIV infection
     Dosage: UNK
     Route: 048
     Dates: start: 2003
  3. TRUVADA [Suspect]
     Active Substance: EMTRICITABINE\TENOFOVIR DISOPROXIL FUMARATE
     Dosage: UNK
     Route: 048
     Dates: end: 201003
  4. TRUVADA [Suspect]
     Active Substance: EMTRICITABINE\TENOFOVIR DISOPROXIL FUMARATE
     Dosage: UNK
     Route: 048
     Dates: start: 20100304, end: 20100502
  5. TRUVADA [Suspect]
     Active Substance: EMTRICITABINE\TENOFOVIR DISOPROXIL FUMARATE
     Dosage: UNK
     Route: 048
     Dates: start: 20100504, end: 201408
  6. TRUVADA [Suspect]
     Active Substance: EMTRICITABINE\TENOFOVIR DISOPROXIL FUMARATE
     Dosage: UNK
     Route: 048
     Dates: start: 20140830, end: 20141113
  7. TRUVADA [Suspect]
     Active Substance: EMTRICITABINE\TENOFOVIR DISOPROXIL FUMARATE
     Dosage: UNK
     Route: 048
     Dates: start: 20141201, end: 20150611
  8. TRUVADA [Suspect]
     Active Substance: EMTRICITABINE\TENOFOVIR DISOPROXIL FUMARATE
     Dosage: UNK
     Route: 048
     Dates: start: 201506, end: 20160509
  9. TRUVADA [Suspect]
     Active Substance: EMTRICITABINE\TENOFOVIR DISOPROXIL FUMARATE
     Dosage: UNK
     Route: 048
     Dates: start: 201005, end: 201605
  10. BIKTARVY [Concomitant]
     Active Substance: BICTEGRAVIR SODIUM\EMTRICITABINE\TENOFOVIR ALAFENAMIDE FUMARATE
  11. DESCOVY [Concomitant]
     Active Substance: EMTRICITABINE\TENOFOVIR ALAFENAMIDE FUMARATE
  12. GENVOYA [Concomitant]
     Active Substance: COBICISTAT\ELVITEGRAVIR\EMTRICITABINE\TENOFOVIR ALAFENAMIDE FUMARATE
  13. KALETRA [Concomitant]
     Active Substance: LOPINAVIR\RITONAVIR
  14. TIVICAY [Concomitant]
     Active Substance: DOLUTEGRAVIR SODIUM
  15. ACYCLOVIR [Concomitant]
     Active Substance: ACYCLOVIR
  16. ADVAIR HFA [Concomitant]
     Active Substance: FLUTICASONE PROPIONATE\SALMETEROL XINAFOATE
  17. ALBUTEROL [Concomitant]
     Active Substance: ALBUTEROL
  18. AMOXICILLIN [Concomitant]
     Active Substance: AMOXICILLIN
  19. AZITHROMYCIN [Concomitant]
     Active Substance: AZITHROMYCIN
  20. BACLOFEN [Concomitant]
     Active Substance: BACLOFEN
  21. BENZONATATE [Concomitant]
     Active Substance: BENZONATATE
  22. BREO ELLIPTA [Concomitant]
     Active Substance: FLUTICASONE FUROATE\VILANTEROL TRIFENATATE
  23. BUSPIRONE [Concomitant]
     Active Substance: BUSPIRONE HYDROCHLORIDE
  24. ACETAMINOPHEN\BUTALBITAL [Concomitant]
     Active Substance: ACETAMINOPHEN\BUTALBITAL
  25. CALCIPOTRIENE [Concomitant]
     Active Substance: CALCIPOTRIENE
  26. CALCITRIOL [Concomitant]
     Active Substance: CALCITRIOL
  27. CAPTOPRIL [Concomitant]
     Active Substance: CAPTOPRIL
  28. CARAFATE [Concomitant]
     Active Substance: SUCRALFATE
  29. CARTIA XT [Concomitant]
     Active Substance: DILTIAZEM HYDROCHLORIDE
  30. CARVEDILOL [Concomitant]
     Active Substance: CARVEDILOL
  31. CEPHALEXIN [Concomitant]
     Active Substance: CEPHALEXIN
  32. CETIRIZINE [Concomitant]
     Active Substance: CETIRIZINE HYDROCHLORIDE
  33. CIPROFLOXACIN [Concomitant]
     Active Substance: CIPROFLOXACIN
  34. COLCHICINE [Concomitant]
     Active Substance: COLCHICINE
  35. CYCLOBENZAPRINE [Concomitant]
     Active Substance: CYCLOBENZAPRINE
  36. CYMBALTA [Concomitant]
     Active Substance: DULOXETINE HYDROCHLORIDE
  37. DICLOFENAC [Concomitant]
     Active Substance: DICLOFENAC
  38. DILTIAZEM [Concomitant]
     Active Substance: DILTIAZEM
  39. DIPHENHYDRAMINE [Concomitant]
     Active Substance: DIPHENHYDRAMINE
  40. DIVALPROEX SODIUM [Concomitant]
     Active Substance: DIVALPROEX SODIUM
  41. DOCQLACE [Concomitant]
     Active Substance: DOCUSATE SODIUM
  42. DOXEPIN [Concomitant]
     Active Substance: DOXEPIN
  43. DOXYCYCLINE [Concomitant]
     Active Substance: DOXYCYCLINE
  44. DULOXETINE [Concomitant]
     Active Substance: DULOXETINE
  45. ELIQUIS [Concomitant]
     Active Substance: APIXABAN
  46. ENOXAPARIN [Concomitant]
     Active Substance: ENOXAPARIN
  47. FLECAINIDE [Concomitant]
     Active Substance: FLECAINIDE
  48. FLUARIX NOS [Concomitant]
     Active Substance: INFLUENZA VIRUS VACCINE
  49. FLUCONAZOLE [Concomitant]
     Active Substance: FLUCONAZOLE
  50. FLUTICASONE [Concomitant]
     Active Substance: FLUTICASONE
  51. FUROSEMIDE [Concomitant]
     Active Substance: FUROSEMIDE
  52. GABAPENTIN [Concomitant]
     Active Substance: GABAPENTIN
  53. GAVILYTE - C [Concomitant]
     Active Substance: POLYETHYLENE GLYCOL 3350\POTASSIUM CHLORIDE\SODIUM BICARBONATE\SODIUM CHLORIDE\SODIUM SULFATE
  54. HYDROCODONE [Concomitant]
     Active Substance: HYDROCODONE
  55. HYDROMORPHONE [Concomitant]
     Active Substance: HYDROMORPHONE
  56. HYDROXYZINE [Concomitant]
     Active Substance: HYDROXYZINE HYDROCHLORIDE
  57. INDOMETHACIN [Concomitant]
     Active Substance: INDOMETHACIN
  58. INVIRASE [Concomitant]
     Active Substance: SAQUINAVIR MESYLATE
  59. IPRATROPIUM [Concomitant]
     Active Substance: IPRATROPIUM
  60. KETOCONAZOLE [Concomitant]
     Active Substance: KETOCONAZOLE
  61. KLOR-CON [Concomitant]
     Active Substance: POTASSIUM CHLORIDE
  62. LABETALOL [Concomitant]
     Active Substance: LABETALOL\LABETALOL HYDROCHLORIDE
  63. LACTULOSE [Concomitant]
     Active Substance: LACTULOSE
  64. LEVOTHYROXINE [Concomitant]
     Active Substance: LEVOTHYROXINE
  65. LIDOCAINE [Concomitant]
     Active Substance: LIDOCAINE
  66. LISINOPRIL [Concomitant]
     Active Substance: LISINOPRIL
  67. LORATADINE [Concomitant]
     Active Substance: LORATADINE
  68. ENOXAPARIN SODIUM [Concomitant]
     Active Substance: ENOXAPARIN SODIUM
  69. METHOCARBAMOL [Concomitant]
     Active Substance: METHOCARBAMOL
  70. METHYLPREDNISOLONE [Concomitant]
     Active Substance: METHYLPREDNISOLONE
  71. METOCLOPRAMIDE [Concomitant]
     Active Substance: METOCLOPRAMIDE
  72. METOPROLOL [Concomitant]
     Active Substance: METOPROLOL
  73. MONTELUKAST [Concomitant]
     Active Substance: MONTELUKAST SODIUM
  74. NADOLOL [Concomitant]
     Active Substance: NADOLOL
  75. NAPROXEN [Concomitant]
     Active Substance: NAPROXEN
  76. NARCAN [Concomitant]
     Active Substance: NALOXONE HYDROCHLORIDE
  77. NEUPRO [Concomitant]
     Active Substance: ROTIGOTINE
  78. NITROFURANTOIN [Concomitant]
     Active Substance: NITROFURANTOIN
  79. NORTRIPTYLINE [Concomitant]
     Active Substance: NORTRIPTYLINE
  80. NYSTATIN [Concomitant]
     Active Substance: NYSTATIN
  81. OMEPRAZOLE [Concomitant]
     Active Substance: OMEPRAZOLE
  82. ONDANSETRON [Concomitant]
     Active Substance: ONDANSETRON
  83. OSELTAMIVIR [Concomitant]
     Active Substance: OSELTAMIVIR
  84. OXYBUTYNIN [Concomitant]
     Active Substance: OXYBUTYNIN
  85. PANTOPRAZOLE [Concomitant]
     Active Substance: PANTOPRAZOLE
  86. PHENAZOPYRIDIN HCL [Concomitant]
  87. PNEUMOVAX 23 [Concomitant]
     Active Substance: PNEUMOCOCCAL VACCINE, POLYVALENT 23
  88. POLYETHYLENE GLYCOL 3350 [Concomitant]
     Active Substance: POLYETHYLENE GLYCOL 3350
  89. POTASSIUM CHLORIDE [Concomitant]
     Active Substance: POTASSIUM CHLORIDE
  90. PRAMIPEXOLE [Concomitant]
     Active Substance: PRAMIPEXOLE
  91. PRAVASTATIN [Concomitant]
     Active Substance: PRAVASTATIN
  92. PREDNISOLONE [Concomitant]
     Active Substance: PREDNISOLONE
  93. PREDNISONE [Concomitant]
     Active Substance: PREDNISONE
  94. PREMARIN [Concomitant]
     Active Substance: ESTROGENS, CONJUGATED
  95. PROAIR BRONQUIAL [Concomitant]
  96. PROCHLORPERAZINE [Concomitant]
     Active Substance: PROCHLORPERAZINE
  97. PROMETHAZINE [Concomitant]
     Active Substance: PROMETHAZINE HYDROCHLORIDE
  98. RANITIDINE [Concomitant]
     Active Substance: RANITIDINE
  99. RESTASIS [Concomitant]
     Active Substance: CYCLOSPORINE
  100. ROXICET [Concomitant]
     Active Substance: ACETAMINOPHEN\OXYCODONE HYDROCHLORIDE
  101. ROZEREM [Concomitant]
     Active Substance: RAMELTEON
  102. SENNA LEAF [Concomitant]
     Active Substance: SENNA LEAF
  103. SHINGRIX [Concomitant]
     Active Substance: RECOMBINANT VARICELLA ZOSTER VIRUS (VZV) GLYCOPROTEIN E
  104. SINGULAIR [Concomitant]
     Active Substance: MONTELUKAST SODIUM
  105. SMZ (CO) [Concomitant]
  106. SPIRIVA [Concomitant]
     Active Substance: TIOTROPIUM BROMIDE MONOHYDRATE
  107. SPIRONOLACTONE [Concomitant]
     Active Substance: SPIRONOLACTONE
  108. SUCRALFATE [Concomitant]
     Active Substance: SUCRALFATE
  109. SUMATRIPTAN [Concomitant]
     Active Substance: SUMATRIPTAN
  110. SYMBICORT [Concomitant]
     Active Substance: BUDESONIDE\FORMOTEROL FUMARATE DIHYDRATE
  111. TEMAZEPAM [Concomitant]
     Active Substance: TEMAZEPAM
  112. TIZANIDINE [Concomitant]
     Active Substance: TIZANIDINE
  113. TOPIRAMATE [Concomitant]
     Active Substance: TOPIRAMATE
  114. TRAMADOL [Concomitant]
     Active Substance: TRAMADOL
  115. TRAZODONE [Concomitant]
     Active Substance: TRAZODONE HYDROCHLORIDE
  116. TRELEGY ELLIPTA [Concomitant]
     Active Substance: FLUTICASONE FUROATE\UMECLIDINIUM BROMIDE\VILANTEROL TRIFENATATE
  117. TRIAMTERENE [Concomitant]
     Active Substance: TRIAMTERENE
  118. UBRELVY [Concomitant]
     Active Substance: UBROGEPANT
  119. VASCEPA [Concomitant]
     Active Substance: ICOSAPENT ETHYL
  120. VENTOLIN [Concomitant]
     Active Substance: ALBUTEROL SULFATE
  121. VERAPAMIL [Concomitant]
     Active Substance: VERAPAMIL HYDROCHLORIDE
  122. VITAMIN D NOS [Concomitant]
     Active Substance: VITAMIN D NOS
  123. DICLOFENAC POTASSIUM [Concomitant]
     Active Substance: DICLOFENAC POTASSIUM
  124. WARFARIN [Concomitant]
     Active Substance: WARFARIN
  125. ZOLPIDEM [Concomitant]
     Active Substance: ZOLPIDEM TARTRATE
  126. PROLIA [Concomitant]
     Active Substance: DENOSUMAB

REACTIONS (15)
  - End stage renal disease [Not Recovered/Not Resolved]
  - Acute kidney injury [Not Recovered/Not Resolved]
  - Chronic kidney disease [Not Recovered/Not Resolved]
  - Nephrolithiasis [Unknown]
  - Osteoporosis [Not Recovered/Not Resolved]
  - Multiple fractures [Not Recovered/Not Resolved]
  - Cervical vertebral fracture [Not Recovered/Not Resolved]
  - Renal injury [Unknown]
  - Drug ineffective [Unknown]
  - Pain [Not Recovered/Not Resolved]
  - Anxiety [Not Recovered/Not Resolved]
  - Emotional distress [Not Recovered/Not Resolved]
  - Anhedonia [Not Recovered/Not Resolved]
  - Skeletal injury [Unknown]
  - Bone demineralisation [Not Recovered/Not Resolved]

NARRATIVE: CASE EVENT DATE: 20160101
